FAERS Safety Report 14094640 (Version 2)
Quarter: 2017Q4

REPORT INFORMATION
  Report Type: Spontaneous
  Country: US (occurrence: US)
  Receive Date: 20171016
  Receipt Date: 20171018
  Transmission Date: 20180321
  Serious: No
  Sender: FDA-Public Use
  Company Number: US-AMGEN-USASP2017048334

PATIENT
  Age: 78 Year
  Sex: Female

DRUGS (3)
  1. METOPROLOL. [Concomitant]
     Active Substance: METOPROLOL
     Dosage: UNK
  2. VYTORIN [Concomitant]
     Active Substance: EZETIMIBE\SIMVASTATIN
     Dosage: 10/20
  3. PROLIA [Suspect]
     Active Substance: DENOSUMAB
     Indication: OSTEOPOROSIS POSTMENOPAUSAL
     Dosage: UNK, UNK
     Route: 065
     Dates: start: 201604

REACTIONS (6)
  - Spinal column stenosis [Unknown]
  - Pain in extremity [Unknown]
  - Neck pain [Unknown]
  - Arthralgia [Unknown]
  - Musculoskeletal pain [Unknown]
  - Back pain [Unknown]

NARRATIVE: CASE EVENT DATE: 2016
